FAERS Safety Report 16637304 (Version 1)
Quarter: 2019Q3

REPORT INFORMATION
  Report Type: Spontaneous
  Country: US (occurrence: US)
  Receive Date: 20190613
  Receipt Date: 20190613
  Transmission Date: 20191004
  Serious: Yes (Hospitalization)
  Sender: FDA-Public Use
  Company Number: None

PATIENT
  Age: 80 Year
  Sex: Female
  Weight: 49.06 kg

DRUGS (1)
  1. ARIMIDEX [Suspect]
     Active Substance: ANASTROZOLE
     Dates: end: 20190417

REACTIONS (3)
  - Arthralgia [None]
  - Joint swelling [None]
  - Erythema [None]

NARRATIVE: CASE EVENT DATE: 20190411
